FAERS Safety Report 16279091 (Version 1)
Quarter: 2019Q2

REPORT INFORMATION
  Report Type: Spontaneous
  Country: IT (occurrence: IT)
  Receive Date: 20190506
  Receipt Date: 20190506
  Transmission Date: 20190711
  Serious: Yes (Other)
  Sender: FDA-Public Use
  Company Number: IT-SA-2019SA116608

PATIENT
  Age: 36 Year
  Sex: Female

DRUGS (1)
  1. STILNOX [Suspect]
     Active Substance: ZOLPIDEM TARTRATE
     Indication: DRUG ABUSE
     Dosage: 100 MG, TOTAL
     Route: 048
     Dates: start: 20190125, end: 20190125

REACTIONS (4)
  - Dry mouth [Recovering/Resolving]
  - Mucosal dryness [Recovering/Resolving]
  - Drug abuse [Unknown]
  - Intentional product misuse [Unknown]

NARRATIVE: CASE EVENT DATE: 20190125
